FAERS Safety Report 7396332-8 (Version None)
Quarter: 2011Q1

REPORT INFORMATION
  Report Type: 
  Country: None (occurrence: None)
  Receive Date: 20110331
  Receipt Date: 20110331
  Transmission Date: 20110831
  Serious: Yes (Hospitalization)
  Sender: FDA-Public Use
  Company Number: None

PATIENT
  Sex: Female
  Weight: 78.9259 kg

DRUGS (1)
  1. NIFEDIPINE [Suspect]
     Indication: BLOOD PRESSURE
     Dosage: 1 TABLET 2 TIMES DAY
     Dates: start: 20110222

REACTIONS (5)
  - PRODUCT SUBSTITUTION ISSUE [None]
  - NAUSEA [None]
  - HEADACHE [None]
  - BLOOD PRESSURE INCREASED [None]
  - JOINT SWELLING [None]
